FAERS Safety Report 7530083-1 (Version None)
Quarter: 2011Q2

REPORT INFORMATION
  Report Type: 
  Country: None (occurrence: None)
  Receive Date: 20110607
  Receipt Date: 20110531
  Transmission Date: 20111010
  Serious: Yes (Death, Other)
  Sender: FDA-Public Use
  Company Number: PHHY2011CH22180

PATIENT
  Sex: Female
  Weight: 64 kg

DRUGS (8)
  1. SERETIDE [Concomitant]
     Indication: CHRONIC OBSTRUCTIVE PULMONARY DISEASE
  2. LYRICA [Concomitant]
     Dosage: 50 MG, DAILY
     Dates: start: 20100101
  3. ONBREZ [Suspect]
     Indication: ASTHMA
     Dosage: 150 UG, DAILY
     Dates: start: 20101024, end: 20110220
  4. SYMBICORT [Concomitant]
     Indication: CHRONIC OBSTRUCTIVE PULMONARY DISEASE
  5. TYSABRI [Concomitant]
     Dosage: 300 MG, DAILY
     Dates: start: 20091102
  6. AERIUS [Concomitant]
  7. ONBREZ [Suspect]
     Indication: CHRONIC OBSTRUCTIVE PULMONARY DISEASE
     Dosage: 150 UG, DAILY
  8. RASILEZ [Suspect]
     Dosage: 150 MG, DAILY
     Dates: start: 20100101, end: 20110220

REACTIONS (9)
  - LUNG DISORDER [None]
  - ACUTE RESPIRATORY FAILURE [None]
  - ASTHMATIC CRISIS [None]
  - PULMONARY OEDEMA [None]
  - PLEURAL ADHESION [None]
  - CORONARY ARTERY DISEASE [None]
  - EMPHYSEMA [None]
  - PULMONARY CONGESTION [None]
  - PULMONARY FIBROSIS [None]
